FAERS Safety Report 15409876 (Version 2)
Quarter: 2019Q3

REPORT INFORMATION
  Report Type: Spontaneous
  Country: US (occurrence: US)
  Receive Date: 20180920
  Receipt Date: 20190731
  Transmission Date: 20191004
  Serious: Yes (Hospitalization, Disabling, Other)
  Sender: FDA-Public Use
  Company Number: US-JNJFOC-20180908852

PATIENT
  Age: 47 Year
  Sex: Female

DRUGS (1)
  1. INVOKANA [Suspect]
     Active Substance: CANAGLIFLOZIN
     Indication: DIABETES MELLITUS MANAGEMENT
     Route: 048
     Dates: start: 201501

REACTIONS (3)
  - Osteomyelitis [Unknown]
  - Diabetic foot infection [Unknown]
  - Leg amputation [Unknown]

NARRATIVE: CASE EVENT DATE: 20170925
